FAERS Safety Report 4704552-3 (Version None)
Quarter: 2005Q2

REPORT INFORMATION
  Report Type: 
  Country: None (occurrence: None)
  Receive Date: 20050629
  Receipt Date: 20050618
  Transmission Date: 20051028
  Serious: Yes (Other)
  Sender: FDA-Public Use
  Company Number: 2005068475

PATIENT
  Age: 39 Year
  Sex: Female

DRUGS (5)
  1. DOSTINEX [Suspect]
     Indication: HYPERPROLACTINAEMIA
     Dosage: 0.5 MG (0.5 MG, 1 IN 1 WK) ORAL
     Route: 048
     Dates: start: 20040401
  2. OLCADIL (CLOXAZOLAM) [Concomitant]
  3. CLONAZEPAM [Concomitant]
  4. PURAN T4 (LEVOTHYROXINE SODIUM) [Concomitant]
  5. PAROXETINE HCL [Concomitant]

REACTIONS (4)
  - HEADACHE [None]
  - LABYRINTHITIS [None]
  - THYROID GLAND CANCER [None]
  - VERTIGO [None]
